FAERS Safety Report 16391701 (Version 3)
Quarter: 2019Q3

REPORT INFORMATION
  Report Type: Spontaneous
  Country: US (occurrence: US)
  Receive Date: 20190605
  Receipt Date: 20190718
  Transmission Date: 20191004
  Serious: Yes (Life-Threatening, Hospitalization, Other)
  Sender: FDA-Public Use
  Company Number: US-GLENMARK PHARMACEUTICALS-2019GMK041513

PATIENT
  Age: 44 Year
  Sex: Female

DRUGS (2)
  1. PHENCYCLIDINE [Concomitant]
     Active Substance: PHENCYCLIDINE
     Indication: PRODUCT USED FOR UNKNOWN INDICATION
     Dosage: UNK
     Route: 065
  2. LAMOTRIGINE. [Suspect]
     Active Substance: LAMOTRIGINE
     Indication: PRODUCT USED FOR UNKNOWN INDICATION
     Dosage: UNK (OVERDOSE); (EMPTY BOTTLES OF LTG)
     Route: 065

REACTIONS (9)
  - Unresponsive to stimuli [Recovering/Resolving]
  - Sedation [Recovering/Resolving]
  - Sinus tachycardia [Unknown]
  - Depressed level of consciousness [Recovering/Resolving]
  - Blood creatinine increased [Unknown]
  - Drug level increased [Unknown]
  - Blood creatine phosphokinase increased [Unknown]
  - White blood cell count increased [Unknown]
  - Overdose [Unknown]
